FAERS Safety Report 5888630-1 (Version None)
Quarter: 2008Q3

REPORT INFORMATION
  Report Type: 
  Country: None (occurrence: None)
  Receive Date: 20080916
  Receipt Date: 20080831
  Transmission Date: 20090109
  Serious: Yes (Life-Threatening, Hospitalization)
  Sender: FDA-Public Use
  Company Number: 8036574

PATIENT
  Age: 29 Year
  Sex: Male
  Weight: 68 kg

DRUGS (3)
  1. KEPPRA [Suspect]
     Indication: POST-ANOXIC MYOCLONUS
     Dosage: 500 MG 3/D IV
     Route: 042
     Dates: start: 20080808, end: 20080819
  2. ATARAX [Suspect]
     Indication: AGITATION
     Dosage: 50 MG 3/D IV
     Route: 042
     Dates: start: 20080808, end: 20080808
  3. VALIUM [Suspect]
     Indication: POST-ANOXIC MYOCLONUS
     Dosage: IV
     Route: 042
     Dates: start: 20080808, end: 20080816

REACTIONS (8)
  - ANOXIC ENCEPHALOPATHY [None]
  - CHOLESTASIS [None]
  - COMA [None]
  - CYTOLYTIC HEPATITIS [None]
  - DISTURBANCE IN ATTENTION [None]
  - HYPERTONIA [None]
  - HYPOTONIA [None]
  - PYRAMIDAL TRACT SYNDROME [None]
